FAERS Safety Report 6753395-8 (Version None)
Quarter: 2010Q2

REPORT INFORMATION
  Report Type: 
  Country: None (occurrence: None)
  Receive Date: 20100603
  Receipt Date: 20100527
  Transmission Date: 20101027
  Serious: Yes (Death)
  Sender: FDA-Public Use
  Company Number: US-SANOFI-AVENTIS-2010SA031281

PATIENT

DRUGS (1)
  1. AMBIEN [Suspect]
     Route: 048
     Dates: end: 20070101

REACTIONS (2)
  - ASPHYXIA [None]
  - CARBON MONOXIDE POISONING [None]
